FAERS Safety Report 25123208 (Version 1)
Quarter: 2025Q1

REPORT INFORMATION
  Report Type: Spontaneous
  Country: US (occurrence: US)
  Receive Date: 20250326
  Receipt Date: 20250326
  Transmission Date: 20250409
  Serious: No
  Sender: SANOFI AVENTIS
  Company Number: US-SA-2025SA086175

PATIENT
  Age: 54 Year
  Sex: Male

DRUGS (3)
  1. DUPIXENT [Suspect]
     Active Substance: DUPILUMAB
     Indication: Dermatitis atopic
     Dosage: 300MG
     Route: 058
     Dates: start: 202204
  2. BETAMETHASONE [Concomitant]
     Active Substance: BETAMETHASONE
  3. NIZORAL [Concomitant]
     Active Substance: KETOCONAZOLE

REACTIONS (1)
  - Drug ineffective [Unknown]
